FAERS Safety Report 22638601 (Version 4)
Quarter: 2023Q4

REPORT INFORMATION
  Report Type: Spontaneous
  Country: US (occurrence: US)
  Receive Date: 20230626
  Receipt Date: 20231219
  Transmission Date: 20240110
  Serious: Yes (Hospitalization, Other)
  Sender: FDA-Public Use
  Company Number: US-BRISTOL-MYERS SQUIBB COMPANY-2023-088785

PATIENT
  Age: 67 Year
  Sex: Female

DRUGS (2)
  1. POMALYST [Suspect]
     Active Substance: POMALIDOMIDE
     Indication: Plasma cell myeloma
     Dosage: FREQUENCY: TAKE 1 CAPSULE BY MOUTH DAILY FOR 21 DAYS, 7 DAYS OFF
     Route: 048
     Dates: start: 20210811
  2. POMALYST [Suspect]
     Active Substance: POMALIDOMIDE
     Dosage: FREQUENCY: 2 MG EVERY OTHER DAY FOR 21 DAYS, WITH A 7 DAYS BREAK
     Route: 048

REACTIONS (5)
  - Seasonal allergy [Not Recovered/Not Resolved]
  - Back pain [Recovered/Resolved]
  - Musculoskeletal chest pain [Recovered/Resolved]
  - Off label use [Unknown]
  - Oropharyngeal pain [Recovered/Resolved]
